FAERS Safety Report 5732251-8 (Version None)
Quarter: 2008Q2

REPORT INFORMATION
  Report Type: 
  Country: None (occurrence: None)
  Receive Date: 20080508
  Receipt Date: 20080505
  Transmission Date: 20081010
  Serious: Yes (Hospitalization)
  Sender: FDA-Public Use
  Company Number: FR-BOEHRINGER INGELHEIM GMBH, GERMANY-2008-FF-00355FF

PATIENT
  Sex: Male

DRUGS (3)
  1. VIRAMUNE [Suspect]
     Route: 048
  2. TRUVADA [Concomitant]
  3. CLONAZEPAM [Concomitant]

REACTIONS (1)
  - INTENTIONAL OVERDOSE [None]
